FAERS Safety Report 8076742-6 (Version None)
Quarter: 2012Q1

REPORT INFORMATION
  Report Type: 
  Country: None (occurrence: None)
  Receive Date: 20120127
  Receipt Date: 20120127
  Transmission Date: 20120608
  Serious: Yes (Other)
  Sender: FDA-Public Use
  Company Number: US-ROXANE LABORATORIES, INC.-2011-RO-00611RO

PATIENT
  Age: 54 Year
  Sex: Female

DRUGS (1)
  1. METHADONE HCL [Suspect]

REACTIONS (3)
  - DRUG DIVERSION [None]
  - LEGAL PROBLEM [None]
  - FEELING GUILTY [None]
